FAERS Safety Report 4666031-1 (Version None)
Quarter: 2005Q2

REPORT INFORMATION
  Report Type: 
  Country: None (occurrence: None)
  Receive Date: 20050517
  Receipt Date: 20050517
  Transmission Date: 20051028
  Serious: Yes (Other)
  Sender: FDA-Public Use
  Company Number: None

PATIENT
  Age: 62 Year
  Sex: Male
  Weight: 83.9154 kg

DRUGS (5)
  1. HURRICANE SPRAY 20% (BENZOCAINE) [Suspect]
     Indication: ECHOCARDIOGRAM
     Dosage: PHARYNGEAL ANESTHESIA
     Dates: start: 20050304
  2. ZYVOX [Concomitant]
  3. METOPROLOL [Concomitant]
  4. HEPARIN [Concomitant]
  5. PREVACID [Concomitant]

REACTIONS (1)
  - METHAEMOGLOBINAEMIA [None]
